FAERS Safety Report 9091573 (Version 1)
Quarter: 2013Q1

REPORT INFORMATION
  Report Type: Report from Study
  Country: US (occurrence: US)
  Receive Date: 20130201
  Receipt Date: 20130201
  Transmission Date: 20140127
  Serious: No
  Sender: FDA-Public Use
  Company Number: US-ABBOTT-12P-163-1025603-00

PATIENT
  Age: 55 Year
  Sex: Female

DRUGS (9)
  1. HUMIRA [Suspect]
     Indication: RHEUMATOID ARTHRITIS
     Route: 058
  2. MINOCYCLINE [Concomitant]
     Indication: ROSACEA
  3. METHOTREXATE [Concomitant]
     Indication: PRODUCT USED FOR UNKNOWN INDICATION
  4. CELEBREX [Concomitant]
     Indication: PAIN
  5. LYRICA [Concomitant]
     Indication: FIBROMYALGIA
  6. HYDROCODONE [Concomitant]
     Indication: ARTHRALGIA
  7. LISINOPRIL [Concomitant]
     Indication: BLOOD PRESSURE
  8. MULTIVITAMIN WITH HIGH DOSAGE OF FOLIC ACID AND IRON [Concomitant]
     Indication: PRODUCT USED FOR UNKNOWN INDICATION
  9. CYMBALTA [Concomitant]
     Indication: DEPRESSION

REACTIONS (2)
  - Hypothyroidism [Unknown]
  - Incorrect storage of drug [Unknown]
